FAERS Safety Report 12631131 (Version 2)
Quarter: 2016Q3

REPORT INFORMATION
  Report Type: Spontaneous
  Country: US (occurrence: US)
  Receive Date: 20160808
  Receipt Date: 20160808
  Transmission Date: 20161109
  Serious: No
  Sender: FDA-Public Use
  Company Number: US-BEH-2015052409

PATIENT
  Sex: Female
  Weight: 87 kg

DRUGS (21)
  1. AMLODIPINE [Concomitant]
     Active Substance: AMLODIPINE BESYLATE
  2. LOSARTAN. [Concomitant]
     Active Substance: LOSARTAN
  3. GABAPENTIN. [Concomitant]
     Active Substance: GABAPENTIN
  4. FOLIC ACID. [Concomitant]
     Active Substance: FOLIC ACID
  5. CLOBETASOL [Concomitant]
     Active Substance: CLOBETASOL
  6. HIZENTRA [Suspect]
     Active Substance: HUMAN IMMUNOGLOBULIN G
     Indication: PRODUCT USED FOR UNKNOWN INDICATION
     Route: 058
  7. LANTUS [Concomitant]
     Active Substance: INSULIN GLARGINE
  8. AUGMENTIN [Concomitant]
     Active Substance: AMOXICILLIN\CLAVULANATE POTASSIUM
  9. SYMBICORT [Concomitant]
     Active Substance: BUDESONIDE\FORMOTEROL FUMARATE DIHYDRATE
  10. TYLENOL [Concomitant]
     Active Substance: ACETAMINOPHEN
  11. XOPENEX [Concomitant]
     Active Substance: LEVALBUTEROL HYDROCHLORIDE
  12. METFORMIN [Concomitant]
     Active Substance: METFORMIN HYDROCHLORIDE
  13. PULMICORT TURBUHALER [Concomitant]
     Active Substance: BUDESONIDE
  14. KETOCONAZOLE. [Concomitant]
     Active Substance: KETOCONAZOLE
  15. DIPHENHYDRAMINE. [Concomitant]
     Active Substance: DIPHENHYDRAMINE
  16. EPIPEN [Concomitant]
     Active Substance: EPINEPHRINE
  17. LMX [Concomitant]
     Active Substance: LIDOCAINE
  18. TRAMADOL. [Concomitant]
     Active Substance: TRAMADOL
  19. CLOBETASOL [Concomitant]
     Active Substance: CLOBETASOL
  20. ARMOUR THYROID [Concomitant]
     Active Substance: THYROID, PORCINE
  21. SALINE RINSE [Concomitant]

REACTIONS (1)
  - Swelling [Unknown]
